FAERS Safety Report 6620888-3 (Version None)
Quarter: 2010Q1

REPORT INFORMATION
  Report Type: 
  Country: None (occurrence: None)
  Receive Date: 20100309
  Receipt Date: 20100301
  Transmission Date: 20100710
  Serious: Yes (Other)
  Sender: FDA-Public Use
  Company Number: US-WATSON-2010-02466

PATIENT
  Age: 5 Year
  Sex: Female
  Weight: 20.408 kg

DRUGS (3)
  1. OXYTROL [Suspect]
     Indication: BLADDER SPASM
     Dosage: 3.9 MG, SINGLE
     Route: 062
     Dates: start: 20100225, end: 20100227
  2. TYLENOL (CAPLET) [Concomitant]
     Indication: POSTOPERATIVE ANALGESIA
     Dosage: UNK
     Route: 065
  3. SULFAMETHOXAZOLE [Concomitant]
     Indication: VESICOURETERIC REFLUX
     Dosage: 0.6 ML, QHS
     Route: 048
     Dates: start: 20090301

REACTIONS (12)
  - AGITATION [None]
  - CONFUSIONAL STATE [None]
  - DEPERSONALISATION [None]
  - DISORIENTATION [None]
  - FEAR [None]
  - HALLUCINATION [None]
  - HYPERACUSIS [None]
  - HYPERAESTHESIA [None]
  - OVERDOSE [None]
  - PARANOIA [None]
  - SUSPICIOUSNESS [None]
  - TEMPERATURE INTOLERANCE [None]
